FAERS Safety Report 6349430-1 (Version None)
Quarter: 2009Q3

REPORT INFORMATION
  Report Type: 
  Country: None (occurrence: None)
  Receive Date: 20090911
  Receipt Date: 20090908
  Transmission Date: 20100115
  Serious: Yes (Hospitalization)
  Sender: FDA-Public Use
  Company Number: FR-BRISTOL-MYERS SQUIBB COMPANY-14770515

PATIENT

DRUGS (4)
  1. CETUXIMAB [Suspect]
     Indication: COLON CANCER
     Dosage: STRENGTH-5MG/ML;DISCONTINUED ON 29JUN09.
     Route: 042
     Dates: start: 20090504, end: 20090622
  2. OXALIPLATIN [Suspect]
     Indication: COLON CANCER
     Dosage: RECENT INF:27JUL09.
     Route: 042
     Dates: start: 20090504
  3. FLUOROURACIL [Suspect]
     Indication: COLON CANCER
     Dosage: RECENT INF:27JUL09.
     Route: 042
     Dates: start: 20090504
  4. FOLINIC ACID [Suspect]
     Indication: COLON CANCER
     Dosage: RECENT INF:27JUL09.
     Route: 042
     Dates: start: 20090504

REACTIONS (1)
  - MYOCARDIAL INFARCTION [None]
